FAERS Safety Report 10979328 (Version 2)
Quarter: 2015Q4

REPORT INFORMATION
  Report Type: Spontaneous
  Country: BR (occurrence: BR)
  Receive Date: 20150402
  Receipt Date: 20151029
  Transmission Date: 20160304
  Serious: Yes (Death, Hospitalization)
  Sender: FDA-Public Use
  Company Number: BR-B.I. PHARMACEUTICALS,INC./RIDGEFIELD-2015-BI-17248BR

PATIENT
  Age: 89 Year
  Sex: Female
  Weight: 63 kg

DRUGS (2)
  1. MICARDIS [Suspect]
     Active Substance: TELMISARTAN
     Indication: CARDIAC DISORDER
     Dosage: 80 MG
     Route: 048
     Dates: end: 20131227
  2. SELOZOK [Concomitant]
     Active Substance: METOPROLOL SUCCINATE
     Indication: CARDIAC DISORDER
     Dosage: 50 MG
     Route: 048

REACTIONS (9)
  - Multi-organ failure [Fatal]
  - Type 2 diabetes mellitus [Fatal]
  - Thrombosis [Fatal]
  - Septic shock [Fatal]
  - Acute kidney injury [Fatal]
  - Fall [Not Recovered/Not Resolved]
  - Pneumonia [Fatal]
  - Femur fracture [Not Recovered/Not Resolved]
  - Hypertension [Fatal]

NARRATIVE: CASE EVENT DATE: 20131212
